FAERS Safety Report 17921079 (Version 1)
Quarter: 2020Q2

REPORT INFORMATION
  Report Type: Spontaneous
  Country: AT (occurrence: AT)
  Receive Date: 20200622
  Receipt Date: 20200622
  Transmission Date: 20200714
  Serious: Yes (Other)
  Sender: FDA-Public Use
  Company Number: AT-LUPIN PHARMACEUTICALS INC.-2020-02878

PATIENT
  Age: 59 Year
  Sex: Female

DRUGS (8)
  1. ARIPIPRAZOLE. [Interacting]
     Active Substance: ARIPIPRAZOLE
     Indication: CONSTIPATION
  2. ARIPIPRAZOLE. [Interacting]
     Active Substance: ARIPIPRAZOLE
     Indication: DEPRESSION
     Dosage: 5 MILLIGRAM, QD (SINCE 2 YEARS)
     Route: 065
  3. ARIPIPRAZOLE. [Interacting]
     Active Substance: ARIPIPRAZOLE
     Indication: SLEEP DISORDER
  4. BISOPROLOL [Interacting]
     Active Substance: BISOPROLOL
     Indication: HYPERTENSION
     Dosage: 1.25 MILLIGRAM, QD
     Route: 065
  5. CANDESARTAN. [Interacting]
     Active Substance: CANDESARTAN
     Indication: HYPERTENSION
     Dosage: 32/12 MG QD
     Route: 065
  6. DULOXETINE. [Suspect]
     Active Substance: DULOXETINE
     Indication: DEPRESSION
     Dosage: 30 MILLIGRAM, QD (SINCE 6 YEARS)
     Route: 065
  7. DULOXETINE. [Interacting]
     Active Substance: DULOXETINE
     Indication: CONSTIPATION
     Dosage: UNK, SLOWLY TAPER
     Route: 065
  8. DULOXETINE. [Interacting]
     Active Substance: DULOXETINE
     Indication: SLEEP DISORDER

REACTIONS (3)
  - Myalgia [Recovered/Resolved]
  - Drug interaction [Unknown]
  - Musculoskeletal stiffness [Recovered/Resolved]
